FAERS Safety Report 7689075-4 (Version None)
Quarter: 2011Q3

REPORT INFORMATION
  Report Type: 
  Country: None (occurrence: None)
  Receive Date: 20110817
  Receipt Date: 20110815
  Transmission Date: 20111222
  Serious: Yes (Hospitalization, Other)
  Sender: FDA-Public Use
  Company Number: US-MERCK-1108USA01751

PATIENT
  Age: 60 Year
  Sex: Female
  Weight: 64 kg

DRUGS (25)
  1. HYDRODIURIL [Suspect]
     Route: 048
  2. DIOVAN [Suspect]
     Route: 065
  3. COZAAR [Suspect]
     Route: 048
  4. PRINIVIL [Suspect]
     Route: 048
  5. DEPAKOTE [Suspect]
     Indication: CONVULSION
     Route: 065
     Dates: start: 19960101
  6. BYSTOLIC [Suspect]
     Route: 065
  7. BACTRIM [Suspect]
     Route: 065
  8. REGLAN [Suspect]
     Route: 065
  9. ATACAND [Suspect]
     Route: 065
  10. LIDOCAINE HCL [Suspect]
     Indication: INGROWING NAIL
     Route: 065
     Dates: start: 20100513, end: 20100513
  11. LEVOTHYROXINE SODIUM [Concomitant]
     Route: 065
  12. NORVASC [Suspect]
     Route: 065
     Dates: start: 20100101
  13. DILANTIN [Suspect]
     Route: 065
     Dates: start: 19960101
  14. XANAX [Suspect]
     Route: 065
  15. MACROBID [Suspect]
     Route: 065
  16. AVAPRO [Suspect]
     Indication: HYPERTENSION
     Route: 065
  17. LEVAQUIN [Suspect]
     Route: 065
  18. NORVASC [Suspect]
     Route: 065
     Dates: start: 19970101
  19. CARDIZEM [Suspect]
     Route: 065
  20. ATACAND [Suspect]
     Route: 065
  21. CLONIDINE [Concomitant]
     Indication: BLOOD PRESSURE ABNORMAL
     Route: 065
  22. NORVASC [Suspect]
     Indication: HYPERTENSION
     Route: 065
     Dates: start: 19950101
  23. FUROSEMIDE [Suspect]
     Route: 065
  24. BENICAR [Suspect]
     Indication: HYPERTENSION
     Route: 065
     Dates: end: 20070101
  25. CIPROFLOXACIN [Suspect]
     Route: 065

REACTIONS (17)
  - BURNING SENSATION [None]
  - BLOOD PRESSURE INCREASED [None]
  - GASTRIC DILATATION [None]
  - HYPERTENSION [None]
  - GALLBLADDER DISORDER [None]
  - DIZZINESS [None]
  - PALPITATIONS [None]
  - INGROWING NAIL [None]
  - ARTERIOSCLEROSIS CORONARY ARTERY [None]
  - CYSTITIS [None]
  - WEIGHT DECREASED [None]
  - FULL BLOOD COUNT DECREASED [None]
  - ERYTHEMA [None]
  - LOSS OF CONSCIOUSNESS [None]
  - ADVERSE EVENT [None]
  - INSOMNIA [None]
  - HEADACHE [None]
